FAERS Safety Report 11190293 (Version 2)
Quarter: 2015Q3

REPORT INFORMATION
  Report Type: Report from Study
  Country: DE (occurrence: DE)
  Receive Date: 20150615
  Receipt Date: 20150716
  Transmission Date: 20151125
  Serious: Yes (Death)
  Sender: FDA-Public Use
  Company Number: DE-INCYTE CORPORATION-2015IN002719

PATIENT
  Age: 79 Year
  Sex: Male

DRUGS (5)
  1. INCB018424 [Suspect]
     Active Substance: RUXOLITINIB
     Indication: MYELOFIBROSIS
     Dosage: 2 DF (15 MG EACH), QD
     Route: 048
     Dates: start: 20131031
  2. NEPHROTRANS [Concomitant]
     Indication: METABOLIC ACIDOSIS
     Dosage: 500 MG, QD
     Route: 065
  3. PANTOPRAZOLE SODIUM. [Concomitant]
     Active Substance: PANTOPRAZOLE SODIUM
     Indication: ABDOMINAL DISCOMFORT
     Dosage: 20 MG, QD
     Route: 065
  4. FUROSEMID//FUROSEMIDE [Concomitant]
     Indication: POLYURIA
     Route: 065
  5. FOLSAN [Concomitant]
     Active Substance: FOLIC ACID
     Indication: PRODUCT USED FOR UNKNOWN INDICATION
     Route: 065

REACTIONS (1)
  - Empyema [Fatal]
